FAERS Safety Report 9845162 (Version 1)
Quarter: 2014Q1

REPORT INFORMATION
  Report Type: Spontaneous
  Country: US (occurrence: US)
  Receive Date: 20140127
  Receipt Date: 20140127
  Transmission Date: 20141002
  Serious: Yes (Other)
  Sender: FDA-Public Use
  Company Number: US-009507513-1401USA010434

PATIENT
  Sex: Female

DRUGS (2)
  1. FOSAMAX [Suspect]
     Indication: OSTEOPOROSIS PROPHYLAXIS
     Dosage: 70 MG, QW
     Route: 048
     Dates: start: 1994
  2. FOSAMAX [Suspect]
     Indication: OSTEOPOROSIS

REACTIONS (5)
  - Surgery [Unknown]
  - Bruxism [Unknown]
  - Hypoaesthesia [Unknown]
  - Pain in jaw [Unknown]
  - Muscle spasms [Unknown]
